FAERS Safety Report 17039026 (Version 1)
Quarter: 2019Q4

REPORT INFORMATION
  Report Type: Spontaneous
  Country: US (occurrence: US)
  Receive Date: 20191115
  Receipt Date: 20191115
  Transmission Date: 20200122
  Serious: No
  Sender: FDA-Public Use
  Company Number: US-GLAXOSMITHKLINE-US2019204019

PATIENT
  Age: 77 Year
  Sex: Female

DRUGS (2)
  1. ELIQUIS [Interacting]
     Active Substance: APIXABAN
     Indication: PRODUCT USED FOR UNKNOWN INDICATION
     Dosage: UNK UNK, BID
  2. DICLOFENAC SODIUM GEL [Suspect]
     Active Substance: DICLOFENAC SODIUM
     Indication: PAIN
     Dosage: 2 G, QID
     Dates: start: 20191002

REACTIONS (4)
  - Abdominal pain upper [Unknown]
  - Labelled drug-drug interaction medication error [Unknown]
  - Contraindicated product administered [Unknown]
  - Incorrect dose administered [Unknown]

NARRATIVE: CASE EVENT DATE: 20191012
